FAERS Safety Report 5269961-5 (Version None)
Quarter: 2007Q1

REPORT INFORMATION
  Report Type: 
  Country: None (occurrence: None)
  Receive Date: 20070314
  Receipt Date: 20070307
  Transmission Date: 20070707
  Serious: Yes (Death)
  Sender: FDA-Public Use
  Company Number: TCI2007A00385

PATIENT
  Age: 83 Year
  Sex: Male

DRUGS (2)
  1. LEUPROLIDE ACETATE [Suspect]
     Indication: PROSTATE CANCER STAGE I
     Dosage: 11.25 MG (11.25 MG, 1 IN 12 WK), SUBCUTANEOUS
     Route: 058
     Dates: start: 20060327, end: 20060327
  2. CASODEX [Concomitant]

REACTIONS (1)
  - GASTROINTESTINAL CARCINOMA [None]
